FAERS Safety Report 9007888 (Version 1)
Quarter: 2013Q1

REPORT INFORMATION
  Report Type: Spontaneous
  Country: US (occurrence: US)
  Receive Date: 20130110
  Receipt Date: 20130110
  Transmission Date: 20140127
  Serious: Yes (Other)
  Sender: FDA-Public Use
  Company Number: US-009507513-0309USA02947

PATIENT
  Sex: 0

DRUGS (2)
  1. SINGULAIR [Suspect]
     Dosage: UNK UNK, QD
     Route: 048
  2. ADVAIR [Suspect]
     Dosage: 150/50

REACTIONS (1)
  - Rash [Unknown]
